FAERS Safety Report 8543757-0 (Version None)
Quarter: 2012Q3

REPORT INFORMATION
  Report Type: 
  Country: None (occurrence: None)
  Receive Date: 20120727
  Receipt Date: 20120718
  Transmission Date: 20120928
  Serious: Yes (Other)
  Sender: FDA-Public Use
  Company Number: US-INCYTE CORPORATION-2012IN001312

PATIENT
  Sex: Male

DRUGS (11)
  1. ACYCLOVIR [Concomitant]
  2. FOLIC ACID [Concomitant]
  3. LANTUS [Concomitant]
  4. ALLOPURINOL [Concomitant]
  5. PREDNISONE [Concomitant]
  6. PLAQUENIL [Concomitant]
  7. CITALOPRAM HYDROBROMIDE [Concomitant]
  8. HUMALOG [Concomitant]
  9. PLAVIX [Concomitant]
  10. JAKAFI [Suspect]
     Indication: MYELOFIBROSIS
     Dosage: 15 MG, BID
     Route: 048
  11. GABAPENTIN [Concomitant]

REACTIONS (2)
  - BLISTER [None]
  - HAEMOGLOBIN DECREASED [None]
